FAERS Safety Report 8925965 (Version 1)
Quarter: 2012Q4

REPORT INFORMATION
  Report Type: 
  Country: GB (occurrence: GB)
  Receive Date: 20121126
  Receipt Date: 20121126
  Transmission Date: 20130627
  Serious: Yes (Hospitalization)
  Sender: FDA-Public Use
  Company Number: GB-ROXANE LABORATORIES, INC.-2012-RO-02430RO

PATIENT
  Age: 76 Year
  Sex: Female

DRUGS (6)
  1. CLARITHROMYCIN [Suspect]
     Indication: LOWER RESPIRATORY TRACT INFECTION
  2. PERINDOPRIL ERBUMINE [Suspect]
  3. BENDROFLUMETHIAZIDE [Suspect]
  4. SIMVASTATIN [Suspect]
  5. LEVOTHYROXINE [Suspect]
  6. MEBEVERINE [Suspect]

REACTIONS (1)
  - Henoch-Schonlein purpura [Recovered/Resolved]
